FAERS Safety Report 19643512 (Version 1)
Quarter: 2021Q3

REPORT INFORMATION
  Report Type: Report from Study
  Country: BR (occurrence: BR)
  Receive Date: 20210731
  Receipt Date: 20210731
  Transmission Date: 20211014
  Serious: Yes (Death, Other)
  Sender: FDA-Public Use
  Company Number: NVSC2021BR172326

PATIENT
  Age: 51 Year
  Sex: Male

DRUGS (2)
  1. DABRAFENIB [Suspect]
     Active Substance: DABRAFENIB
     Indication: METASTATIC MALIGNANT MELANOMA
     Dosage: 2 DF, BID
     Route: 048
     Dates: start: 20160705
  2. TRAMETINIB [Suspect]
     Active Substance: TRAMETINIB
     Indication: METASTATIC MALIGNANT MELANOMA
     Dosage: 2 MG, QD
     Route: 048
     Dates: start: 20160705

REACTIONS (13)
  - Pancreatitis [Fatal]
  - Intestinal haemorrhage [Unknown]
  - Pyrexia [Recovered/Resolved]
  - Enteritis [Unknown]
  - Lymphadenopathy [Fatal]
  - Photophobia [Unknown]
  - Ascites [Fatal]
  - Pleural effusion [Fatal]
  - Type 2 diabetes mellitus [Unknown]
  - Pneumoperitoneum [Fatal]
  - Retroperitoneal lymphadenopathy [Fatal]
  - Malignant melanoma [Unknown]
  - Colitis [Unknown]

NARRATIVE: CASE EVENT DATE: 201708
